FAERS Safety Report 13734214 (Version 1)
Quarter: 2017Q3

REPORT INFORMATION
  Report Type: Spontaneous
  Country: PH (occurrence: PH)
  Receive Date: 20170708
  Receipt Date: 20170708
  Transmission Date: 20171127
  Serious: Yes (Other)
  Sender: FDA-Public Use
  Company Number: PH-009507513-1706PHL009442

PATIENT
  Sex: Female

DRUGS (1)
  1. HYZAAR [Suspect]
     Active Substance: HYDROCHLOROTHIAZIDE\LOSARTAN POTASSIUM
     Indication: HYPERTENSION
     Dosage: UNK
     Route: 048
     Dates: start: 2014, end: 2017

REACTIONS (2)
  - Diabetes mellitus [Recovered/Resolved with Sequelae]
  - Dialysis [Recovered/Resolved with Sequelae]

NARRATIVE: CASE EVENT DATE: 201706
